FAERS Safety Report 14783866 (Version 2)
Quarter: 2018Q3

REPORT INFORMATION
  Report Type: Spontaneous
  Country: US (occurrence: US)
  Receive Date: 20180420
  Receipt Date: 20180711
  Transmission Date: 20181010
  Serious: No
  Sender: FDA-Public Use
  Company Number: US-PFIZER INC-2018161155

PATIENT
  Age: 12 Year
  Sex: Male

DRUGS (1)
  1. GENOTROPIN [Suspect]
     Active Substance: SOMATROPIN
     Indication: BLOOD GROWTH HORMONE ABNORMAL
     Dosage: 1.1 MG, DAILY

REACTIONS (4)
  - Drug dose omission [Unknown]
  - Vomiting [Recovered/Resolved]
  - Drug prescribing error [Unknown]
  - Abdominal pain upper [Unknown]
